FAERS Safety Report 4418738-9 (Version None)
Quarter: 2004Q3

REPORT INFORMATION
  Report Type: 
  Country: None (occurrence: None)
  Receive Date: 20040809
  Receipt Date: 20040105
  Transmission Date: 20050211
  Serious: No
  Sender: FDA-Public Use
  Company Number: US-GLAXOSMITHKLINE-A0491579A

PATIENT
  Age: 26 Year
  Sex: Male

DRUGS (3)
  1. PAXIL [Suspect]
     Indication: ANXIETY
     Dosage: 20MG PER DAY
     Route: 048
     Dates: start: 20031112
  2. LEXAPRO [Suspect]
     Indication: ANXIETY
     Dosage: 20MG PER DAY
     Route: 048
     Dates: start: 20030801, end: 20031203
  3. STRATTERA [Concomitant]

REACTIONS (7)
  - ANGER [None]
  - FEELING JITTERY [None]
  - HEADACHE [None]
  - MENTAL IMPAIRMENT [None]
  - MUSCLE TWITCHING [None]
  - SLEEP DISORDER [None]
  - THIRST [None]
